FAERS Safety Report 13667193 (Version 2)
Quarter: 2017Q3

REPORT INFORMATION
  Report Type: Spontaneous
  Country: DK (occurrence: DK)
  Receive Date: 20170619
  Receipt Date: 20170828
  Transmission Date: 20171127
  Serious: Yes (Death, Life-Threatening, Other)
  Sender: FDA-Public Use
  Company Number: DK-B.I. PHARMACEUTICALS,INC./RIDGEFIELD-2017-BI-028134

PATIENT
  Age: 88 Year
  Sex: Male
  Weight: 70 kg

DRUGS (10)
  1. KALEORID [Concomitant]
     Active Substance: POTASSIUM CHLORIDE
     Indication: PRODUCT USED FOR UNKNOWN INDICATION
     Route: 065
     Dates: start: 20121127, end: 20170419
  2. PRADAXA [Suspect]
     Active Substance: DABIGATRAN ETEXILATE MESYLATE
     Indication: MYOCARDIAL INFARCTION
     Route: 048
     Dates: start: 20121122, end: 20170417
  3. URAPLEX [Concomitant]
     Indication: DYSURIA
     Route: 065
     Dates: start: 20121127, end: 20170420
  4. BURANA [Concomitant]
     Active Substance: IBUPROFEN
     Indication: PRODUCT USED FOR UNKNOWN INDICATION
     Route: 065
     Dates: start: 20121128, end: 20170419
  5. CENTYL MITE MED KALIUMKLORID [Concomitant]
     Indication: PRODUCT USED FOR UNKNOWN INDICATION
     Route: 065
     Dates: start: 20121111, end: 20170419
  6. METOPROLOLSUCCINAT ^ORION^ [Concomitant]
     Indication: ARRHYTHMIA
     Route: 065
     Dates: start: 20121112
  7. MIANSERIN ^ORIFARM^ [Concomitant]
     Indication: DEPRESSION
     Route: 065
     Dates: start: 20110107
  8. PANODIL [Concomitant]
     Active Substance: ACETAMINOPHEN
     Indication: PAIN
     Route: 065
  9. CITALOPRAM [Concomitant]
     Active Substance: CITALOPRAM HYDROBROMIDE
     Indication: PRODUCT USED FOR UNKNOWN INDICATION
     Route: 065
     Dates: start: 20121111, end: 20170419
  10. KININ ^DAK^ [Concomitant]
     Indication: MUSCLE SPASMS
     Route: 065

REACTIONS (3)
  - Cerebral haemorrhage [Fatal]
  - Myocardial ischaemia [Not Recovered/Not Resolved]
  - Chest pain [Not Recovered/Not Resolved]

NARRATIVE: CASE EVENT DATE: 20170417
